FAERS Safety Report 7364630-X (Version None)
Quarter: 2011Q1

REPORT INFORMATION
  Report Type: 
  Country: None (occurrence: None)
  Receive Date: 20110321
  Receipt Date: 20110307
  Transmission Date: 20110831
  Serious: Yes (Hospitalization)
  Sender: FDA-Public Use
  Company Number: JP-PFIZER INC-2011057815

PATIENT
  Age: 78 Year
  Sex: Male

DRUGS (1)
  1. MIGLITOL [Suspect]
     Indication: DIABETES MELLITUS
     Dosage: 150 MG, UNK
     Route: 048
     Dates: start: 20101019, end: 20101116

REACTIONS (1)
  - HEPATIC FUNCTION ABNORMAL [None]
